FAERS Safety Report 9542951 (Version 2)
Quarter: 2013Q4

REPORT INFORMATION
  Report Type: Report from Study
  Country: JP (occurrence: JP)
  Receive Date: 20130923
  Receipt Date: 20131122
  Transmission Date: 20140711
  Serious: Yes (Death)
  Sender: FDA-Public Use
  Company Number: JP-ROCHE-1275619

PATIENT
  Age: 51 Year
  Sex: Female
  Weight: 60 kg

DRUGS (9)
  1. METHOXY POLYETHYLENE GLYCOL-EPOETIN BETA [Suspect]
     Indication: NEPHROGENIC ANAEMIA
     Route: 041
     Dates: start: 20120611, end: 20130408
  2. TAKEPRON [Concomitant]
     Route: 048
     Dates: end: 20130422
  3. FOSRENOL [Concomitant]
     Route: 048
     Dates: end: 20130422
  4. TANKARU [Concomitant]
     Route: 048
     Dates: end: 20130422
  5. ARTIST [Concomitant]
     Indication: PROPHYLAXIS
     Route: 048
     Dates: end: 20130422
  6. DIOVAN [Concomitant]
     Dosage: NON-DIALYSIS DAY
     Route: 048
     Dates: end: 20130422
  7. PLAVIX [Concomitant]
     Indication: PROPHYLAXIS
     Route: 048
     Dates: end: 20130422
  8. CINACALCET HYDROCHLORIDE [Concomitant]
     Route: 048
     Dates: end: 20130422
  9. SODIUM CARBONATE [Concomitant]
     Indication: PROPHYLAXIS
     Route: 048
     Dates: end: 20130422

REACTIONS (1)
  - Aortic aneurysm rupture [Fatal]
